FAERS Safety Report 5223777-4 (Version None)
Quarter: 2007Q1

REPORT INFORMATION
  Report Type: 
  Country: None (occurrence: None)
  Receive Date: 20070130
  Receipt Date: 20070118
  Transmission Date: 20070707
  Serious: Yes (Other)
  Sender: FDA-Public Use
  Company Number: PHBS2007BE01368

PATIENT
  Age: 71 Year
  Sex: Male
  Weight: 70 kg

DRUGS (7)
  1. ZOMETA [Suspect]
     Indication: METASTASES TO BONE
     Dosage: 4 MG, MONTHLY
     Route: 042
     Dates: start: 20050530, end: 20060831
  2. DAFALGAN [Concomitant]
     Dosage: 500 MG, IF NEEDED
     Route: 065
  3. BRUFEN [Concomitant]
     Dosage: 600 MG, IF NEEDED
     Route: 065
  4. ZOLPIDEM TARTRATE [Concomitant]
     Dosage: 5 MG/D
     Route: 065
  5. STEOVIT D3 [Concomitant]
     Dosage: 400 MG/D
     Route: 065
  6. TARCEVA [Concomitant]
     Dosage: 150 MG/D
     Route: 065
     Dates: start: 20061029
  7. TRANSTEC [Concomitant]
     Dosage: 35 UG, / 3 DAYS
     Route: 065
     Dates: start: 20061029

REACTIONS (2)
  - OSTEONECROSIS [None]
  - TOOTH EXTRACTION [None]
